FAERS Safety Report 13235429 (Version 2)
Quarter: 2017Q3

REPORT INFORMATION
  Report Type: Spontaneous
  Country: US (occurrence: US)
  Receive Date: 20170215
  Receipt Date: 20170814
  Transmission Date: 20171127
  Serious: Yes (Other)
  Sender: FDA-Public Use
  Company Number: US-PFIZER INC-2017056730

PATIENT
  Age: 31 Year
  Sex: Female

DRUGS (2)
  1. SOMAVERT [Suspect]
     Active Substance: PEGVISOMANT
     Indication: ACROMEGALY
     Dosage: 30 MG, DAILY
     Route: 058
     Dates: start: 2016
  2. SOMAVERT [Suspect]
     Active Substance: PEGVISOMANT
     Indication: HYPOTHALAMO-PITUITARY DISORDER
     Dosage: 30 MG, DAILY
     Route: 058
     Dates: start: 20170126

REACTIONS (4)
  - Peripheral swelling [Not Recovered/Not Resolved]
  - Abdominal pain upper [Recovering/Resolving]
  - Jaw disorder [Unknown]
  - Headache [Unknown]

NARRATIVE: CASE EVENT DATE: 201608
